FAERS Safety Report 12687490 (Version 1)
Quarter: 2016Q3

REPORT INFORMATION
  Report Type: Spontaneous
  Country: US (occurrence: US)
  Receive Date: 20160825
  Receipt Date: 20160825
  Transmission Date: 20161109
  Serious: No
  Sender: FDA-Public Use
  Company Number: US-BAYER-2016-162503

PATIENT
  Age: 26 Year
  Sex: Female

DRUGS (1)
  1. MIRENA [Suspect]
     Active Substance: LEVONORGESTREL
     Dosage: 20 MCG/24HR, CONT
     Route: 015
     Dates: start: 20160810

REACTIONS (4)
  - Vaginal infection [None]
  - Vulvovaginal rash [None]
  - Pruritus [None]
  - Vaginal discharge [None]

NARRATIVE: CASE EVENT DATE: 201608
